FAERS Safety Report 12471509 (Version 3)
Quarter: 2016Q4

REPORT INFORMATION
  Report Type: Spontaneous
  Country: US (occurrence: US)
  Receive Date: 20160616
  Receipt Date: 20161107
  Transmission Date: 20170207
  Serious: Yes (Death, Hospitalization)
  Sender: FDA-Public Use
  Company Number: US-B.I. PHARMACEUTICALS,INC./RIDGEFIELD-2016-BI-38538BI

PATIENT
  Age: 75 Year
  Sex: Female

DRUGS (18)
  1. ASPIRIN. [Suspect]
     Active Substance: ASPIRIN
     Indication: PRODUCT USED FOR UNKNOWN INDICATION
     Dosage: STRENGTH: 81 MG
     Route: 048
     Dates: start: 20120123
  2. METOPROLOL TARTRATE. [Concomitant]
     Active Substance: METOPROLOL TARTRATE
     Indication: PRODUCT USED FOR UNKNOWN INDICATION
     Dosage: STRENGTH: 100 MG
     Route: 048
     Dates: start: 20120123
  3. LISINOPRIL. [Concomitant]
     Active Substance: LISINOPRIL
     Indication: PRODUCT USED FOR UNKNOWN INDICATION
     Dosage: STRENGTH: 40 MG
     Route: 048
     Dates: start: 20120128
  4. ACETAMINOPHEN. [Concomitant]
     Active Substance: ACETAMINOPHEN
     Indication: PRODUCT USED FOR UNKNOWN INDICATION
     Dosage: STRENGTH: 500 MG, DAILY DOSE:1000MG EVERY 6 HOURS AS NEEDED
     Route: 048
     Dates: start: 20120123
  5. LEVEMIR [Concomitant]
     Active Substance: INSULIN DETEMIR
     Indication: PRODUCT USED FOR UNKNOWN INDICATION
     Dosage: STRENGTH: 100UNIT/ML (3 ML), DOSE PER APPLICATION: 25
     Route: 058
  6. DIGOXIN. [Concomitant]
     Active Substance: DIGOXIN
     Indication: PRODUCT USED FOR UNKNOWN INDICATION
     Dosage: STRENGTH: 125 MCG
     Route: 048
     Dates: start: 20120123
  7. LEXAPRO [Concomitant]
     Active Substance: ESCITALOPRAM OXALATE
     Indication: PRODUCT USED FOR UNKNOWN INDICATION
     Dosage: STRENGTH: 10 MG
     Route: 048
     Dates: start: 20120123
  8. CLONIDINE. [Concomitant]
     Active Substance: CLONIDINE
     Indication: PRODUCT USED FOR UNKNOWN INDICATION
     Dosage: STRENGTH: 0.2 MG
     Route: 048
     Dates: start: 20120123
  9. PRADAXA [Suspect]
     Active Substance: DABIGATRAN ETEXILATE MESYLATE
     Indication: ATRIAL FIBRILLATION
     Route: 048
     Dates: start: 20130103
  10. LOVASTATIN. [Concomitant]
     Active Substance: LOVASTATIN
     Indication: PRODUCT USED FOR UNKNOWN INDICATION
     Dosage: STRENGTH: 20 MG
     Route: 048
     Dates: start: 20120123
  11. GABAPENTIN. [Concomitant]
     Active Substance: GABAPENTIN
     Indication: PRODUCT USED FOR UNKNOWN INDICATION
     Dosage: ER, STRENGTH: 300 MG 24 HR
     Route: 065
     Dates: start: 20120123
  12. METRONIDAZOLE. [Concomitant]
     Active Substance: METRONIDAZOLE
     Indication: DIARRHOEA
     Route: 065
  13. LASIX [Concomitant]
     Active Substance: FUROSEMIDE
     Indication: PRODUCT USED FOR UNKNOWN INDICATION
     Dosage: STRENGTH: 40 MG
     Route: 048
     Dates: start: 20120123
  14. CYANOCOBALAMIN. [Concomitant]
     Active Substance: CYANOCOBALAMIN
     Indication: PRODUCT USED FOR UNKNOWN INDICATION
     Dosage: STRENGTH: 500 MCG
     Route: 065
     Dates: start: 20120123
  15. PROTONIX [Concomitant]
     Active Substance: PANTOPRAZOLE SODIUM
     Indication: PRODUCT USED FOR UNKNOWN INDICATION
     Dosage: STRENGTH: 40 MG
     Route: 048
     Dates: start: 20120503
  16. ZYPREXA [Concomitant]
     Active Substance: OLANZAPINE
     Indication: PRODUCT USED FOR UNKNOWN INDICATION
     Dosage: STRENGTH: 2.5MG
     Route: 048
     Dates: start: 20120123
  17. CENTRUM SILVER ULTRA WOMEN^S [Concomitant]
     Active Substance: MINERALS\VITAMINS
     Indication: PRODUCT USED FOR UNKNOWN INDICATION
     Route: 065
     Dates: start: 20120123
  18. AMARYL [Concomitant]
     Active Substance: GLIMEPIRIDE
     Indication: PRODUCT USED FOR UNKNOWN INDICATION
     Dosage: STRENGTH: 2MG
     Route: 048
     Dates: start: 20120123

REACTIONS (2)
  - Retroperitoneal haematoma [Recovered/Resolved]
  - Upper gastrointestinal haemorrhage [Fatal]

NARRATIVE: CASE EVENT DATE: 20140712
